FAERS Safety Report 4737977-0 (Version None)
Quarter: 2005Q3

REPORT INFORMATION
  Report Type: 
  Country: None (occurrence: None)
  Receive Date: 20050805
  Receipt Date: 20050720
  Transmission Date: 20060218
  Serious: Yes (Hospitalization)
  Sender: FDA-Public Use
  Company Number: DSA_26784_2005

PATIENT
  Age: 46 Year
  Sex: Female

DRUGS (2)
  1. TAVOR [Suspect]
     Dosage: 100 MG ONCE PO
     Route: 048
     Dates: start: 20050717, end: 20050717
  2. ALCOHOL [Suspect]
     Dosage: 0.75  L ONCE PO
     Route: 048
     Dates: start: 20050717, end: 20050717

REACTIONS (4)
  - INTENTIONAL MISUSE [None]
  - OVERDOSE [None]
  - SOMNOLENCE [None]
  - TACHYCARDIA [None]
